FAERS Safety Report 7910706-5 (Version None)
Quarter: 2011Q4

REPORT INFORMATION
  Report Type: 
  Country: None (occurrence: None)
  Receive Date: 20111111
  Receipt Date: 20111107
  Transmission Date: 20120403
  Serious: Yes (Life-Threatening, Other)
  Sender: FDA-Public Use
  Company Number: CA-ASTRAZENECA-2011SE67297

PATIENT
  Age: 58 Year
  Sex: Female
  Weight: 98 kg

DRUGS (8)
  1. VITAMIN D [Concomitant]
  2. LOVAZA [Concomitant]
  3. GLUCOSAMINE AND CHONDOITIN [Concomitant]
  4. ASPIRIN [Concomitant]
  5. RABEPRAZOLE SODIUM [Concomitant]
  6. RAMIPRIL [Concomitant]
  7. CRESTOR [Suspect]
     Route: 048
  8. VITAMIN B-12 [Concomitant]

REACTIONS (3)
  - MOOD ALTERED [None]
  - ANGER [None]
  - SUICIDAL IDEATION [None]
